FAERS Safety Report 9866691 (Version 1)
Quarter: 2014Q1

REPORT INFORMATION
  Report Type: Spontaneous
  Country: US (occurrence: US)
  Receive Date: 20140204
  Receipt Date: 20140204
  Transmission Date: 20141002
  Serious: No
  Sender: FDA-Public Use
  Company Number: US-BIOGENIDEC-2014BI008683

PATIENT
  Sex: Female

DRUGS (13)
  1. TECFIDERA [Suspect]
     Indication: MULTIPLE SCLEROSIS
     Route: 048
     Dates: start: 201311
  2. CYMBALTA [Concomitant]
  3. PRAVACHOL [Concomitant]
  4. CENTRUM MULTIVITAMIN [Concomitant]
  5. DYAZIDE [Concomitant]
  6. AMBIEN [Concomitant]
  7. SYNTHROID [Concomitant]
  8. LISINOPRIL [Concomitant]
  9. BACLOFEN [Concomitant]
  10. KLOR-CON [Concomitant]
  11. BYSTOLIC [Concomitant]
  12. MINOCYCLINE HCL [Concomitant]
  13. COMPLETE MULTIVITAMIN [Concomitant]

REACTIONS (1)
  - Influenza [Unknown]
